FAERS Safety Report 5554154-4 (Version None)
Quarter: 2007Q4

REPORT INFORMATION
  Report Type: 
  Country: None (occurrence: None)
  Receive Date: 20071213
  Receipt Date: 20071212
  Transmission Date: 20080405
  Serious: Yes (Hospitalization, Disabling)
  Sender: FDA-Public Use
  Company Number: A0698480A

PATIENT
  Age: 62 Year
  Sex: Female

DRUGS (4)
  1. ALLI [Suspect]
     Route: 048
     Dates: start: 20070704
  2. MULTI-VITAMIN [Concomitant]
  3. CLIMARA [Concomitant]
  4. ASPIRIN [Concomitant]

REACTIONS (7)
  - ABDOMINAL PAIN [None]
  - APPENDICITIS [None]
  - BACK PAIN [None]
  - BILE DUCT STONE [None]
  - INFECTION [None]
  - NEPHROLITHIASIS [None]
  - WHITE BLOOD CELL COUNT INCREASED [None]
